FAERS Safety Report 22100076 (Version 1)
Quarter: 2023Q1

REPORT INFORMATION
  Report Type: Report from Study
  Country: US (occurrence: US)
  Receive Date: 20230315
  Receipt Date: 20230315
  Transmission Date: 20230417
  Serious: Yes (Hospitalization)
  Sender: FDA-Public Use
  Company Number: US-ABBVIE-4298964

PATIENT
  Age: 85 Year
  Sex: Male

DRUGS (14)
  1. VENETOCLAX [Suspect]
     Active Substance: VENETOCLAX
     Indication: Chronic lymphocytic leukaemia
     Route: 048
     Dates: start: 20220808
  2. ASPIRIN [Concomitant]
     Active Substance: ASPIRIN
     Indication: Cardiovascular event prophylaxis
     Route: 048
     Dates: start: 2018
  3. Artificial Tears [Concomitant]
     Indication: Dry eye
     Dosage: ONE DROP PER EYE
     Dates: start: 2011
  4. ALLOPURINOL [Concomitant]
     Active Substance: ALLOPURINOL
     Indication: Prophylaxis
     Route: 048
     Dates: start: 20211207
  5. ATORVASTATIN [Concomitant]
     Active Substance: ATORVASTATIN
     Indication: Hyperlipidaemia
     Route: 048
     Dates: start: 2011
  6. Latanoprost Ophthalmic [Concomitant]
     Indication: Glaucoma
     Dates: start: 2016
  7. dorzolamide-timolol 22.3-6.8?MG/ML ophthalmic solution [Concomitant]
     Indication: Glaucoma
     Dates: start: 2016
  8. VALACYCLOVIR [Concomitant]
     Active Substance: VALACYCLOVIR HYDROCHLORIDE
     Indication: Antiviral prophylaxis
     Route: 048
     Dates: start: 20220107
  9. SULFAMETHOXAZOLE\TRIMETHOPRIM [Concomitant]
     Active Substance: SULFAMETHOXAZOLE\TRIMETHOPRIM
     Indication: Antibiotic prophylaxis
     Dosage: 800-160 MG; 1 TABLET EVERY MON, WED, AND FRI
     Route: 048
     Dates: start: 20220107
  10. VANCOMYCIN [Concomitant]
     Active Substance: VANCOMYCIN
     Indication: Enterocolitis infectious
     Route: 048
     Dates: start: 20220525
  11. Niacinomide [Concomitant]
     Indication: Routine health maintenance
     Route: 048
     Dates: start: 20230119
  12. ONDANSETRON [Concomitant]
     Active Substance: ONDANSETRON
     Indication: Nausea
     Dosage: TIME INTERVAL: AS NECESSARY: EVERY 6 HOURS AS REQUIRED
     Route: 048
     Dates: start: 20220518
  13. MELATONIN [Concomitant]
     Active Substance: MELATONIN
     Indication: Insomnia
     Dosage: TIME INTERVAL: AS NECESSARY: AT BEDTIME AS REQUIRED
     Route: 048
     Dates: start: 202110
  14. ZOLPIDEM [Concomitant]
     Active Substance: ZOLPIDEM TARTRATE
     Indication: Insomnia
     Dosage: TIME INTERVAL: AS NECESSARY: AT BEDTIME AS REQUIRED
     Route: 048
     Dates: start: 20220429

REACTIONS (2)
  - Clostridium difficile colitis [Recovered/Resolved]
  - Dizziness [Recovered/Resolved]

NARRATIVE: CASE EVENT DATE: 20230128
